FAERS Safety Report 20896328 (Version 1)
Quarter: 2022Q2

REPORT INFORMATION
  Report Type: Spontaneous
  Country: JP (occurrence: JP)
  Receive Date: 20220531
  Receipt Date: 20220531
  Transmission Date: 20220721
  Serious: No
  Sender: FDA-Public Use
  Company Number: JP-LUPIN PHARMACEUTICALS INC.-2022-07682

PATIENT
  Age: 19 Year
  Sex: Female

DRUGS (8)
  1. ZOLPIDEM [Suspect]
     Active Substance: ZOLPIDEM TARTRATE
     Indication: Schizophrenia
     Dosage: 10 MG, PULVERIZED AND DISPENSED IN POWDER FORM
     Route: 065
  2. ZOLPIDEM [Suspect]
     Active Substance: ZOLPIDEM TARTRATE
     Dosage: 5 MG, 5 MG X 60 TABLETS
     Route: 065
  3. RISPERIDONE [Suspect]
     Active Substance: RISPERIDONE
     Indication: Schizophrenia
     Dosage: 5 MG, PULVERIZED AND DISPENSED IN POWDER FORM
     Route: 065
  4. RISPERIDONE [Suspect]
     Active Substance: RISPERIDONE
     Dosage: 1 MG, 1 MG X 10 TABLETS
     Route: 065
  5. LEVOMEPROMAZINE [Suspect]
     Active Substance: LEVOMEPROMAZINE
     Indication: Schizophrenia
     Dosage: 10 MG, PULVERIZED AND DISPENSED IN POWDER FORM
     Route: 065
  6. LEVOMEPROMAZINE [Suspect]
     Active Substance: LEVOMEPROMAZINE
     Dosage: 5 MG, 5 MG X 60 TABLETS
     Route: 065
  7. BROTIZOLAM [Suspect]
     Active Substance: BROTIZOLAM
     Indication: Schizophrenia
     Dosage: 0.25 MG, PULVERIZED AND DISPENSED IN POWDER FORM
     Route: 065
  8. BROTIZOLAM [Suspect]
     Active Substance: BROTIZOLAM
     Dosage: 0.25 MG, 0.25 MG X 30 TABLETS
     Route: 065

REACTIONS (1)
  - Intentional overdose [Unknown]
